FAERS Safety Report 21122277 (Version 4)
Quarter: 2022Q4

REPORT INFORMATION
  Report Type: Spontaneous
  Country: US (occurrence: US)
  Receive Date: 20220723
  Receipt Date: 20221013
  Transmission Date: 20230112
  Serious: No
  Sender: FDA-Public Use
  Company Number: US-BRISTOL-MYERS SQUIBB COMPANY-2022-074819

PATIENT
  Age: 33 Year
  Sex: Female

DRUGS (2)
  1. SPRYCEL [Suspect]
     Active Substance: DASATINIB
     Indication: Chronic myeloid leukaemia
     Route: 048
     Dates: start: 20220623
  2. SPRYCEL [Suspect]
     Active Substance: DASATINIB
     Dosage: DAILY
     Route: 048
     Dates: start: 202206

REACTIONS (7)
  - Memory impairment [Unknown]
  - Oral pain [Unknown]
  - Pruritus [Unknown]
  - Skin exfoliation [Unknown]
  - Bone pain [Unknown]
  - Skin disorder [Unknown]
  - Acne [Unknown]
